FAERS Safety Report 12612658 (Version 2)
Quarter: 2023Q1

REPORT INFORMATION
  Report Type: Spontaneous
  Country: HU (occurrence: HU)
  Receive Date: 20160801
  Receipt Date: 20230216
  Transmission Date: 20230418
  Serious: Yes (Hospitalization, Other)
  Sender: FDA-Public Use
  Company Number: HU-BAXALTA-2016BLT005582

PATIENT
  Age: 25 Year
  Sex: Female

DRUGS (9)
  1. HUMAN IMMUNOGLOBULIN G [Suspect]
     Active Substance: HUMAN IMMUNOGLOBULIN G
     Dosage: 20 GRAM
     Route: 042
  2. METHOTREXATE [Suspect]
     Active Substance: METHOTREXATE
     Indication: Stiff person syndrome
     Dosage: UNK
     Route: 065
  3. AZATHIOPRINE [Suspect]
     Active Substance: AZATHIOPRINE
     Indication: Stiff person syndrome
     Dosage: UNK
     Route: 065
  4. DIMETHYL FUMARATE [Suspect]
     Active Substance: DIMETHYL FUMARATE
     Indication: Stiff person syndrome
     Dosage: UNK
     Route: 065
  5. BACLOFEN [Suspect]
     Active Substance: BACLOFEN
     Indication: Stiff person syndrome
     Dosage: UNK
     Route: 065
  6. DIAZEPAM [Suspect]
     Active Substance: DIAZEPAM
     Indication: Stiff person syndrome
     Dosage: UNK
     Route: 065
  7. GABAPENTIN [Suspect]
     Active Substance: GABAPENTIN
     Indication: Stiff person syndrome
     Dosage: UNK
     Route: 065
  8. MITOXANTRONE [Suspect]
     Active Substance: MITOXANTRONE HYDROCHLORIDE
     Indication: Stiff person syndrome
     Dosage: UNK
     Route: 065
  9. METHYLPREDNISOLONE [Suspect]
     Active Substance: METHYLPREDNISOLONE
     Indication: Stiff person syndrome
     Dosage: UNK
     Route: 065

REACTIONS (8)
  - Leukopenia [Recovered/Resolved]
  - Sepsis [Recovered/Resolved]
  - Disseminated intravascular coagulation [Recovered/Resolved]
  - Ileus paralytic [Recovered/Resolved]
  - Drug ineffective [Unknown]
  - Thrombocytopenia [Recovered/Resolved]
  - Clostridium difficile infection [Recovered/Resolved]
  - Pneumonia [Recovered/Resolved]
